FAERS Safety Report 17500251 (Version 3)
Quarter: 2020Q2

REPORT INFORMATION
  Report Type: Spontaneous
  Country: US (occurrence: US)
  Receive Date: 20200305
  Receipt Date: 20200527
  Transmission Date: 20200713
  Serious: Yes (Death, Hospitalization, Other)
  Sender: FDA-Public Use
  Company Number: US-TEVA-2020-US-1194470

PATIENT
  Age: 67 Year
  Sex: Male

DRUGS (7)
  1. KEYTRUDA [Concomitant]
     Active Substance: PEMBROLIZUMAB
  2. OPDIVO [Concomitant]
     Active Substance: NIVOLUMAB
  3. AVASTIN [Concomitant]
     Active Substance: BEVACIZUMAB
  4. TEMOZOLOMIDE. [Suspect]
     Active Substance: TEMOZOLOMIDE
     Indication: GLIOBLASTOMA
     Route: 065
  5. TEMOZOLOMIDE. [Suspect]
     Active Substance: TEMOZOLOMIDE
     Route: 065
     Dates: start: 20200306, end: 20200310
  6. CARBOPLATIN. [Concomitant]
     Active Substance: CARBOPLATIN
  7. IRINOTECAN [Concomitant]
     Active Substance: IRINOTECAN

REACTIONS (6)
  - Hospice care [Unknown]
  - Dehydration [Fatal]
  - Glioblastoma [Fatal]
  - Malnutrition [Fatal]
  - Thrombocytopenia [Fatal]
  - Ileus [Fatal]

NARRATIVE: CASE EVENT DATE: 201904
